FAERS Safety Report 25428917 (Version 1)
Quarter: 2025Q2

REPORT INFORMATION
  Report Type: Other
  Country: FR (occurrence: FR)
  Receive Date: 20250612
  Receipt Date: 20250612
  Transmission Date: 20250716
  Serious: Yes (Hospitalization, Other)
  Sender: Atnahs Healthcare
  Company Number: None

PATIENT
  Age: 85 Year
  Sex: Male

DRUGS (5)
  1. DIAZEPAM [Suspect]
     Active Substance: DIAZEPAM
     Indication: Wrong patient received product
     Route: 048
     Dates: start: 20250520, end: 20250520
  2. CLOZAPINE [Suspect]
     Active Substance: CLOZAPINE
     Indication: Wrong patient received product
     Route: 048
     Dates: start: 20250520, end: 20250520
  3. CHLORPROMAZINE PAMOATE [Suspect]
     Active Substance: CHLORPROMAZINE PAMOATE
     Indication: Wrong patient received product
     Route: 048
     Dates: start: 20250520, end: 20250520
  4. VALPROATE SODIUM [Suspect]
     Active Substance: VALPROATE SODIUM
     Indication: Wrong patient received product
     Route: 048
     Dates: start: 20250520, end: 20250520
  5. PYRIDOSTIGMINE BROMIDE [Suspect]
     Active Substance: PYRIDOSTIGMINE BROMIDE
     Indication: Product used for unknown indication
     Route: 048
     Dates: start: 20250520, end: 20250520

REACTIONS (2)
  - Wrong patient received product [Unknown]
  - Coma [Unknown]

NARRATIVE: CASE EVENT DATE: 20250520
